FAERS Safety Report 8094834-2 (Version None)
Quarter: 2012Q1

REPORT INFORMATION
  Report Type: 
  Country: None (occurrence: None)
  Receive Date: 20120129
  Receipt Date: 20111210
  Transmission Date: 20120608
  Serious: No
  Sender: FDA-Public Use
  Company Number: US-ABBOTT-11P-163-0882661-00

PATIENT
  Age: 49 Year
  Sex: Female

DRUGS (13)
  1. SYNTHROID [Concomitant]
     Indication: THYROID FUNCTION TEST ABNORMAL
     Dosage: BETWEEN 125 + 150 (BRIGHT BUE) DAILY
  2. DOXEPIN [Concomitant]
     Dosage: IN THE MORNING
  3. LANTUS [Concomitant]
     Indication: DIABETES MELLITUS
  4. ZYRTEC [Concomitant]
     Indication: HYPERSENSITIVITY
     Dosage: DAILY
  5. METOPROLOL TARTRATE [Concomitant]
     Indication: HYPERTENSION
     Dosage: NOT REPORTED
  6. ULTRACET [Concomitant]
     Indication: ARTHRALGIA
     Dosage: AS NEEDED
  7. FOLIC ACID [Concomitant]
     Indication: VITAMIN SUPPLEMENTATION
     Dosage: DAILY
  8. SINGULAIR [Concomitant]
     Indication: HYPERSENSITIVITY
     Dosage: AT BEDTIME
  9. POTASSIUM [Concomitant]
     Indication: BLOOD POTASSIUM DECREASED
     Dosage: NOT REPORTED
  10. HUMIRA [Suspect]
     Indication: RHEUMATOID ARTHRITIS
     Dates: start: 20110101
  11. METHOTREXATE [Concomitant]
     Indication: RHEUMATOID ARTHRITIS
     Dosage: 20 MG WEEKLY
  12. DOXEPIN [Concomitant]
     Indication: VESTIBULAR DISORDER
     Dosage: AT BEDTIME
  13. FLEXERIL [Concomitant]
     Indication: RHEUMATOID ARTHRITIS
     Dosage: AT BEDTIME

REACTIONS (3)
  - FATIGUE [None]
  - SLEEP DISORDER [None]
  - ADENOVIRAL UPPER RESPIRATORY INFECTION [None]
